FAERS Safety Report 8488324-2 (Version None)
Quarter: 2012Q3

REPORT INFORMATION
  Report Type: 
  Country: None (occurrence: None)
  Receive Date: 20120705
  Receipt Date: 20120625
  Transmission Date: 20120928
  Serious: Yes (Other)
  Sender: FDA-Public Use
  Company Number: US-JNJFOC-20120602517

PATIENT
  Sex: Male
  Weight: 67.59 kg

DRUGS (10)
  1. REMICADE [Suspect]
     Indication: CROHN'S DISEASE
     Route: 042
     Dates: start: 20120516
  2. APRISO [Concomitant]
     Indication: CROHN'S DISEASE
     Route: 048
  3. FLAGYL [Concomitant]
     Indication: FISTULA
     Route: 048
     Dates: start: 20120323
  4. VITAMIN B-12 [Concomitant]
     Route: 060
  5. VITAMIN B-12 [Concomitant]
     Indication: ANAEMIA
     Route: 065
  6. FLAGYL [Concomitant]
     Route: 048
     Dates: start: 20120201
  7. FERROUS SULFATE TAB [Concomitant]
     Indication: ANAEMIA
     Route: 048
     Dates: start: 20110101
  8. VITAMIN D [Concomitant]
     Dosage: 1000-2000 UNITS
     Route: 065
  9. LISINOPRIL [Concomitant]
     Indication: HYPERTENSION
     Route: 048
     Dates: start: 20090101
  10. REMICADE [Suspect]
     Dosage: 2ND INFUSION
     Route: 042
     Dates: start: 20120530

REACTIONS (13)
  - PRURITUS [None]
  - RASH [None]
  - CHILLS [None]
  - OEDEMA PERIPHERAL [None]
  - PAIN IN EXTREMITY [None]
  - INFUSION SITE ERYTHEMA [None]
  - FISTULA [None]
  - PALMAR ERYTHEMA [None]
  - INFUSION RELATED REACTION [None]
  - MYALGIA [None]
  - ABNORMAL LOSS OF WEIGHT [None]
  - ERYTHEMA [None]
  - JOINT LOCK [None]
